FAERS Safety Report 7542785-1 (Version None)
Quarter: 2011Q2

REPORT INFORMATION
  Report Type: 
  Country: None (occurrence: None)
  Receive Date: 20110613
  Receipt Date: 20110531
  Transmission Date: 20111010
  Serious: No
  Sender: FDA-Public Use
  Company Number: US-CELGENEUS-163-21880-11040845

PATIENT
  Sex: Male
  Weight: 67.192 kg

DRUGS (13)
  1. ENALAPRIL MALEATE [Concomitant]
     Route: 048
  2. REVLIMID [Suspect]
     Indication: MULTIPLE MYELOMA
     Dosage: 15 MILLIGRAM
     Route: 048
     Dates: start: 20110314
  3. LORTAB [Concomitant]
     Route: 048
  4. HYDROCHLOROTHIAZIDE [Concomitant]
     Route: 048
  5. LANTUS [Concomitant]
     Dosage: 10 MILLIGRAM
     Route: 058
  6. PERCOCET [Concomitant]
     Route: 048
  7. REVLIMID [Suspect]
     Dosage: 10 MILLIGRAM
     Route: 048
     Dates: start: 20110401
  8. HYDRALAZINE HCL [Concomitant]
     Route: 048
  9. NOVOLOG [Concomitant]
     Dosage: SLIDING SCALE
     Route: 058
  10. CYANOCOBALAMIN [Concomitant]
     Route: 030
  11. GABAPENTIN [Concomitant]
     Route: 048
  12. DEXAMETHASONE [Suspect]
     Indication: MULTIPLE MYELOMA
     Dosage: 20 MILLIGRAM
     Route: 048
     Dates: start: 20110301
  13. COREG [Concomitant]
     Route: 048

REACTIONS (1)
  - BLOOD GLUCOSE INCREASED [None]
